FAERS Safety Report 6396247-8 (Version None)
Quarter: 2009Q4

REPORT INFORMATION
  Report Type: 
  Country: None (occurrence: None)
  Receive Date: 20091012
  Receipt Date: 20091006
  Transmission Date: 20100525
  Serious: Yes (Hospitalization)
  Sender: FDA-Public Use
  Company Number: US-BIOGENIDEC-2009BI031062

PATIENT
  Age: 21 Year
  Sex: Male
  Weight: 77 kg

DRUGS (3)
  1. TYSABRI [Suspect]
     Indication: MULTIPLE SCLEROSIS
     Route: 042
     Dates: start: 20080623
  2. MARIJUANA [Concomitant]
  3. BENZOS (BENZODIAZEPINES NOS) [Concomitant]

REACTIONS (4)
  - DRUG SCREEN POSITIVE [None]
  - GRAND MAL CONVULSION [None]
  - INFUSION SITE EXTRAVASATION [None]
  - MULTIPLE SCLEROSIS [None]
